FAERS Safety Report 7354796-X (Version None)
Quarter: 2011Q1

REPORT INFORMATION
  Report Type: 
  Country: None (occurrence: None)
  Receive Date: 20110316
  Receipt Date: 20100420
  Transmission Date: 20110831
  Serious: No
  Sender: FDA-Public Use
  Company Number: US-KINGPHARMUSA00001-K201000485

PATIENT
  Age: 74 Year
  Sex: Female

DRUGS (2)
  1. ALTACE [Suspect]
     Dosage: 10 MG, BID
     Route: 048
     Dates: start: 20090101
  2. AMLODIPINE [Suspect]
     Dosage: 5 MG, QD
     Dates: start: 20090101

REACTIONS (2)
  - ALOPECIA TOTALIS [None]
  - BLOOD TESTOSTERONE INCREASED [None]
